FAERS Safety Report 5220566-1 (Version None)
Quarter: 2007Q1

REPORT INFORMATION
  Report Type: 
  Country: None (occurrence: None)
  Receive Date: 20070126
  Receipt Date: 20070116
  Transmission Date: 20070707
  Serious: Yes (Hospitalization)
  Sender: FDA-Public Use
  Company Number: PHBS2007BR01256

PATIENT
  Age: 6 Year
  Sex: Male
  Weight: 16 kg

DRUGS (2)
  1. TEGRETOL [Suspect]
     Indication: CONVULSION
     Dosage: 4 ML, BID
     Route: 048
     Dates: start: 20061201
  2. GARDAN TAB [Concomitant]
     Indication: CONVULSION
     Dosage: 50 MG, BID
     Route: 048

REACTIONS (5)
  - COUGH [None]
  - DIZZINESS [None]
  - HYPERSENSITIVITY [None]
  - INCISION SITE HAEMORRHAGE [None]
  - INSOMNIA [None]
